FAERS Safety Report 19352707 (Version 1)
Quarter: 2021Q2

REPORT INFORMATION
  Report Type: Spontaneous
  Country: CN (occurrence: CN)
  Receive Date: 20210531
  Receipt Date: 20210531
  Transmission Date: 20210717
  Serious: Yes (Hospitalization, Other)
  Sender: FDA-Public Use
  Company Number: CN-BRISTOL-MYERS SQUIBB COMPANY-BMS-2021-049365

PATIENT
  Age: 50 Year
  Sex: Male
  Weight: 54 kg

DRUGS (1)
  1. BARACLUDE [Suspect]
     Active Substance: ENTECAVIR
     Indication: CIRRHOSIS ALCOHOLIC
     Dosage: 0.5 MILLIGRAM, QD
     Route: 048
     Dates: start: 20210225

REACTIONS (2)
  - Gastric varices haemorrhage [Unknown]
  - Intentional product use issue [Unknown]

NARRATIVE: CASE EVENT DATE: 20210501
